FAERS Safety Report 8248205-6 (Version None)
Quarter: 2012Q1

REPORT INFORMATION
  Report Type: 
  Country: None (occurrence: None)
  Receive Date: 20120330
  Receipt Date: 20120322
  Transmission Date: 20120608
  Serious: Yes (Other)
  Sender: FDA-Public Use
  Company Number: JP-VERTEX PHARMACEUTICALS INC.-AE-2012-004427

PATIENT
  Age: 67 Year
  Sex: Female

DRUGS (7)
  1. OPAPROSMON [Concomitant]
  2. TELAVIC (TELAPREVIR) [Suspect]
     Dates: start: 20120127
  3. RECALBON [Concomitant]
  4. RIBAVIRIN [Concomitant]
     Dates: start: 20120310
  5. TELAVIC (TELAPREVIR) [Suspect]
     Indication: HEPATITIS C
     Route: 048
     Dates: start: 20120125, end: 20120126
  6. PEGINTERFERON [Concomitant]
     Indication: HEPATITIS C
     Route: 051
     Dates: start: 20120125
  7. RIBAVIRIN [Concomitant]
     Indication: HEPATITIS C
     Route: 048
     Dates: start: 20120125, end: 20120310

REACTIONS (1)
  - ERYTHEMA MULTIFORME [None]
